FAERS Safety Report 23840851 (Version 3)
Quarter: 2024Q3

REPORT INFORMATION
  Report Type: Report from Study
  Country: US (occurrence: US)
  Receive Date: 20240510
  Receipt Date: 20240709
  Transmission Date: 20241016
  Serious: Yes (Other)
  Sender: ROCHE
  Company Number: US-ROCHE-3558643

PATIENT
  Age: 77 Year
  Sex: Male

DRUGS (2)
  1. ESBRIET [Suspect]
     Active Substance: PIRFENIDONE
     Indication: Idiopathic pulmonary fibrosis
     Route: 048
     Dates: start: 2015
  2. ESBRIET [Suspect]
     Active Substance: PIRFENIDONE
     Route: 048

REACTIONS (7)
  - Neoplasm malignant [Unknown]
  - Prostate cancer [Unknown]
  - Small cell carcinoma [Unknown]
  - Lung cancer metastatic [Unknown]
  - Lung neoplasm malignant [Unknown]
  - Lung neoplasm [Unknown]
  - Metastases to central nervous system [Unknown]
